FAERS Safety Report 10159501 (Version 1)
Quarter: 2014Q2

REPORT INFORMATION
  Report Type: Spontaneous
  Country: US (occurrence: US)
  Receive Date: 20140508
  Receipt Date: 20140508
  Transmission Date: 20141212
  Serious: Yes (Other)
  Sender: FDA-Public Use
  Company Number: US-SA-2014SA059128

PATIENT
  Age: 86 Year
  Sex: Male

DRUGS (1)
  1. ALLEGRA [Suspect]
     Indication: HYPERSENSITIVITY
     Route: 048

REACTIONS (3)
  - Neoplasm malignant [Unknown]
  - Hypertension [Recovered/Resolved]
  - Extra dose administered [Unknown]
